FAERS Safety Report 4375598-2 (Version None)
Quarter: 2004Q2

REPORT INFORMATION
  Report Type: 
  Country: None (occurrence: None)
  Receive Date: 20040607
  Receipt Date: 20040524
  Transmission Date: 20050107
  Serious: Yes (Other)
  Sender: FDA-Public Use
  Company Number: HQWYE097925MAY04

PATIENT
  Age: 52 Year
  Sex: Male

DRUGS (5)
  1. RAPAMUNE [Suspect]
     Indication: PROPHYLAXIS AGAINST TRANSPLANT REJECTION
     Dosage: ^1Q^
     Dates: start: 20020519, end: 20030709
  2. MYCOPHENOLATE MOFETIL (MYCOPHENOLATE MOFETIL) [Concomitant]
  3. TACROLIMUS (TACROLIMUS) [Concomitant]
  4. PREDNISONE TAB [Concomitant]
  5. COUMADIN [Concomitant]

REACTIONS (1)
  - GLOMERULONEPHRITIS FOCAL [None]
